FAERS Safety Report 5255332-4 (Version None)
Quarter: 2007Q1

REPORT INFORMATION
  Report Type: 
  Country: None (occurrence: None)
  Receive Date: 20070305
  Receipt Date: 20070228
  Transmission Date: 20070707
  Serious: Yes (Hospitalization)
  Sender: FDA-Public Use
  Company Number: FR-GLAXOSMITHKLINE-B0460519A

PATIENT
  Age: 81 Year
  Sex: Female

DRUGS (2)
  1. AUGMENTIN '125' [Suspect]
     Indication: URINARY TRACT INFECTION
     Route: 042
     Dates: start: 20061214, end: 20061221
  2. OFLOCET [Suspect]
     Indication: URINARY TRACT INFECTION
     Route: 050
     Dates: start: 20061214, end: 20061219

REACTIONS (4)
  - HEPATITIS [None]
  - JAUNDICE [None]
  - JAUNDICE CHOLESTATIC [None]
  - PRURITUS [None]
